FAERS Safety Report 9058063 (Version 3)
Quarter: 2013Q2

REPORT INFORMATION
  Report Type: Spontaneous
  Country: GB (occurrence: GB)
  Receive Date: 20130211
  Receipt Date: 20130403
  Transmission Date: 20140414
  Serious: Yes (Other)
  Sender: FDA-Public Use
  Company Number: GB-AMGEN-GBRSP2013008053

PATIENT
  Sex: Female

DRUGS (1)
  1. PROLIA [Suspect]
     Indication: PRODUCT USED FOR UNKNOWN INDICATION
     Dosage: 60 MG, Q6MO
     Route: 058

REACTIONS (4)
  - Osteonecrosis of jaw [Unknown]
  - Gingival infection [Recovered/Resolved]
  - Tooth disorder [Recovered/Resolved]
  - Tooth abscess [Recovered/Resolved]
